FAERS Safety Report 12101176 (Version 2)
Quarter: 2016Q3

REPORT INFORMATION
  Report Type: Report from Study
  Country: US (occurrence: US)
  Receive Date: 20160222
  Receipt Date: 20160713
  Transmission Date: 20161109
  Serious: Yes (Hospitalization, Other)
  Sender: FDA-Public Use
  Company Number: US-ACTELION-A-NJ2016-131531

PATIENT
  Age: 60 Year
  Sex: Female

DRUGS (2)
  1. OPSUMIT [Suspect]
     Active Substance: MACITENTAN
     Indication: PULMONARY ARTERIAL HYPERTENSION
     Dosage: 10 MG, QD
     Route: 048
     Dates: start: 20150903
  2. ADCIRCA [Concomitant]
     Active Substance: TADALAFIL

REACTIONS (3)
  - Renal artery stent placement [Unknown]
  - Nephropathy toxic [Unknown]
  - Anaemia [Unknown]
